FAERS Safety Report 4300888-9 (Version None)
Quarter: 2004Q1

REPORT INFORMATION
  Report Type: 
  Country: None (occurrence: None)
  Receive Date: 20040220
  Receipt Date: 20040212
  Transmission Date: 20041129
  Serious: Yes (Death)
  Sender: FDA-Public Use
  Company Number: WAES 0402FRA00040

PATIENT
  Age: 70 Year
  Sex: Female

DRUGS (2)
  1. [THERAPY UNSPECIFIED] [Concomitant]
  2. VIOXX [Suspect]
     Route: 048
     Dates: start: 20030101, end: 20030101

REACTIONS (1)
  - SUDDEN DEATH [None]
